FAERS Safety Report 22100792 (Version 1)
Quarter: 2023Q1

REPORT INFORMATION
  Report Type: Report from Study
  Country: CA (occurrence: CA)
  Receive Date: 20230316
  Receipt Date: 20230316
  Transmission Date: 20230417
  Serious: Yes (Hospitalization)
  Sender: FDA-Public Use
  Company Number: CA-ABBVIE-4341507

PATIENT
  Sex: Female

DRUGS (1)
  1. RINVOQ [Suspect]
     Active Substance: UPADACITINIB
     Indication: Rheumatoid arthritis
     Route: 048
     Dates: start: 20201203

REACTIONS (4)
  - COVID-19 pneumonia [Unknown]
  - Lumbar vertebral fracture [Unknown]
  - Dislocation of vertebra [Unknown]
  - Rash [Recovering/Resolving]
